FAERS Safety Report 8196543-8 (Version None)
Quarter: 2012Q1

REPORT INFORMATION
  Report Type: 
  Country: None (occurrence: None)
  Receive Date: 20120309
  Receipt Date: 20120229
  Transmission Date: 20120608
  Serious: Yes (Life-Threatening, Hospitalization, Other)
  Sender: FDA-Public Use
  Company Number: FR-BRISTOL-MYERS SQUIBB COMPANY-16427064

PATIENT
  Age: 60 Year
  Sex: Male

DRUGS (3)
  1. SPRYCEL [Suspect]
     Indication: CHRONIC MYELOID LEUKAEMIA
     Dosage: 100MG/D FROM JUL09-AUG11;120MG/D FROM AUG11-NOV11,110MG/D FROM 29NOV11
     Route: 048
     Dates: start: 20090701
  2. ASPEGIC 1000 [Concomitant]
     Dates: start: 20090301
  3. ALLOPURINOL [Concomitant]
     Dates: start: 20090301

REACTIONS (3)
  - HYPERGLYCAEMIA [None]
  - CHRONIC OBSTRUCTIVE PULMONARY DISEASE [None]
  - MYOCARDIAL INFARCTION [None]
